APPROVED DRUG PRODUCT: ALBENDAZOLE
Active Ingredient: ALBENDAZOLE
Strength: 200MG
Dosage Form/Route: TABLET;ORAL
Application: A213435 | Product #001 | TE Code: AB
Applicant: MSN LABORATORIES PRIVATE LTD
Approved: Jan 21, 2021 | RLD: No | RS: No | Type: RX